FAERS Safety Report 5211042-0 (Version None)
Quarter: 2006Q4

REPORT INFORMATION
  Report Type: 
  Country: None (occurrence: None)
  Receive Date: 20061130
  Receipt Date: 20060915
  Transmission Date: 20070319
  Serious: Yes (Disabling)
  Sender: FDA-Public Use
  Company Number: WAES 0609USA03600

PATIENT
  Age: 76 Year
  Sex: Male

DRUGS (3)
  1. FOSAMAX [Suspect]
     Indication: OSTEOPOROSIS
     Dosage: 70 MG/WKY/PO
     Route: 048
     Dates: start: 20060825, end: 20060825
  2. CELEBREX [Concomitant]
  3. RESTORIL [Concomitant]

REACTIONS (1)
  - MUSCLE SPASMS [None]
